FAERS Safety Report 9741473 (Version 1)
Quarter: 2013Q4

REPORT INFORMATION
  Report Type: Report from Study
  Country: AR (occurrence: AR)
  Receive Date: 20131209
  Receipt Date: 20131209
  Transmission Date: 20140711
  Serious: Yes (Other)
  Sender: FDA-Public Use
  Company Number: PHHY2013AR143514

PATIENT
  Sex: Female

DRUGS (2)
  1. DIOVAN [Suspect]
     Indication: HYPERTENSION
     Dosage: 160 MG, DAILY
     Route: 048
  2. DIOVAN [Suspect]
     Dosage: 2 DF (160 MG), DAILY: 1 ?  IN THE MORNING AND ?  AT NIGHT
     Route: 048

REACTIONS (6)
  - Road traffic accident [Unknown]
  - Upper limb fracture [Recovered/Resolved]
  - Post-traumatic stress disorder [Recovering/Resolving]
  - Pain [Recovered/Resolved]
  - Blood pressure increased [Recovering/Resolving]
  - Wrong technique in drug usage process [Unknown]
